FAERS Safety Report 8602995-9 (Version None)
Quarter: 2012Q3

REPORT INFORMATION
  Report Type: 
  Country: None (occurrence: None)
  Receive Date: 20120817
  Receipt Date: 20120501
  Transmission Date: 20120928
  Serious: No
  Sender: FDA-Public Use
  Company Number: US-GLAXOSMITHKLINE-A0976297A

PATIENT
  Age: 58 Year
  Sex: Male
  Weight: 104.5 kg

DRUGS (7)
  1. ALLOPURINOL [Concomitant]
  2. DYAZIDE [Concomitant]
  3. VASOTEC [Concomitant]
  4. PREDNISONE TAB [Concomitant]
  5. VOTRIENT [Suspect]
     Indication: PRODUCT USED FOR UNKNOWN INDICATION
     Dosage: 200MG PER DAY
     Route: 048
     Dates: start: 20100101
  6. METOPROLOL TARTRATE [Concomitant]
  7. MULTI-VITAMIN [Concomitant]

REACTIONS (3)
  - FATIGUE [None]
  - DIARRHOEA [None]
  - HYPOAESTHESIA [None]
